FAERS Safety Report 9032587 (Version 1)
Quarter: 2013Q1

REPORT INFORMATION
  Report Type: Spontaneous
  Country: FR (occurrence: None)
  Receive Date: 20130109
  Receipt Date: 20130109
  Transmission Date: 20140127
  Serious: Yes (Hospitalization)
  Sender: FDA-Public Use
  Company Number: DSA_61787_2013

PATIENT
  Age: 76 Year
  Sex: Female

DRUGS (5)
  1. MONO-TILDIEM [Suspect]
     Indication: HYPERTENSION
     Route: 048
     Dates: start: 20121019, end: 20121106
  2. HYZAAR [Concomitant]
  3. LYRICA [Concomitant]
  4. PARACETAMOL [Concomitant]
  5. VAXIGRIP [Concomitant]

REACTIONS (11)
  - Leukocytosis [None]
  - Dermatitis exfoliative [None]
  - Urticaria [None]
  - Rash maculo-papular [None]
  - Pruritus [None]
  - Burning sensation [None]
  - Vomiting [None]
  - Decreased appetite [None]
  - Syncope [None]
  - Malaise [None]
  - Pyrexia [None]
